FAERS Safety Report 24779446 (Version 1)
Quarter: 2024Q4

REPORT INFORMATION
  Report Type: Spontaneous
  Country: JP (occurrence: JP)
  Receive Date: 20241226
  Receipt Date: 20241226
  Transmission Date: 20250115
  Serious: Yes (Other)
  Sender: PFIZER
  Company Number: JP-PFIZER INC-202400331794

PATIENT
  Age: 76 Year
  Sex: Male

DRUGS (6)
  1. LEVOFLOXACIN [Suspect]
     Active Substance: LEVOFLOXACIN
     Indication: Interstitial lung disease
     Dosage: UNK
     Route: 048
  2. MEROPENEM [Suspect]
     Active Substance: MEROPENEM
     Indication: Interstitial lung disease
     Dosage: UNK
  3. CLINDAMYCIN PHOSPHATE [Suspect]
     Active Substance: CLINDAMYCIN PHOSPHATE
     Indication: Interstitial lung disease
     Dosage: UNK
  4. MOXALACTAM [Suspect]
     Active Substance: MOXALACTAM
     Indication: Interstitial lung disease
     Dosage: UNK
     Route: 042
  5. VANCOMYCIN [Suspect]
     Active Substance: VANCOMYCIN
     Indication: Interstitial lung disease
     Dosage: UNK
  6. CEFTAZIDIME [Suspect]
     Active Substance: CEFTAZIDIME
     Indication: Interstitial lung disease
     Dosage: UNK

REACTIONS (2)
  - Interstitial lung disease [Unknown]
  - Staphylococcal infection [Unknown]
